FAERS Safety Report 6516148-1 (Version None)
Quarter: 2009Q4

REPORT INFORMATION
  Report Type: 
  Country: None (occurrence: None)
  Receive Date: 20091223
  Receipt Date: 20091214
  Transmission Date: 20100525
  Serious: Yes (Other)
  Sender: FDA-Public Use
  Company Number: US-JNJFOC-20091204789

PATIENT
  Sex: Female
  Weight: 72.58 kg

DRUGS (3)
  1. DURAGESIC-100 [Suspect]
     Indication: PAIN
     Route: 062
     Dates: start: 20080101
  2. HYDROCODONE BITARTRATE [Concomitant]
     Indication: BREAKTHROUGH PAIN
     Route: 048
  3. UNKNOWN MEDICATION [Concomitant]
     Indication: HYPERTENSION
     Route: 048

REACTIONS (4)
  - ANXIETY [None]
  - BLOOD TRIGLYCERIDES INCREASED [None]
  - PANIC ATTACK [None]
  - THERAPEUTIC RESPONSE DECREASED [None]
